FAERS Safety Report 5887551-8 (Version None)
Quarter: 2008Q3

REPORT INFORMATION
  Report Type: 
  Country: None (occurrence: None)
  Receive Date: 20080918
  Receipt Date: 20080912
  Transmission Date: 20090109
  Serious: Yes (Other)
  Sender: FDA-Public Use
  Company Number: US-ROCHE-585942

PATIENT
  Sex: Male
  Weight: 72.6 kg

DRUGS (2)
  1. CAPECITABINE [Suspect]
     Indication: COLORECTAL CANCER
     Dosage: TWO WEEKS ON AND TWO WEEK OFF
     Route: 048
     Dates: start: 20080715, end: 20080829
  2. TEMODAR [Concomitant]

REACTIONS (1)
  - DISEASE PROGRESSION [None]
